FAERS Safety Report 8129868-2 (Version None)
Quarter: 2011Q4

REPORT INFORMATION
  Report Type: 
  Country: None (occurrence: None)
  Receive Date: 20111227
  Receipt Date: 20111110
  Transmission Date: 20120403
  Serious: No
  Sender: FDA-Public Use
  Company Number: PHEH2011US01210

PATIENT
  Age: 66 Year
  Sex: Female

DRUGS (3)
  1. SYNTHROID (LEVOTHYROXINE SODIJM) [Concomitant]
  2. GILENYA [Suspect]
     Indication: MULTIPLE SCLEROSIS
     Dosage: 0.5 MG, DAILY, ORAL, 0.5 MG, QD, ORAL
     Route: 048
     Dates: start: 20110719
  3. GILENYA [Suspect]
     Indication: MULTIPLE SCLEROSIS
     Dosage: 0.5 MG, DAILY, ORAL, 0.5 MG, QD, ORAL
     Route: 048
     Dates: start: 20110906

REACTIONS (3)
  - PALPITATIONS [None]
  - NASOPHARYNGITIS [None]
  - DIZZINESS [None]
